FAERS Safety Report 19399195 (Version 2)
Quarter: 2021Q4

REPORT INFORMATION
  Report Type: Report from Study
  Country: US (occurrence: US)
  Receive Date: 20210610
  Receipt Date: 20211005
  Transmission Date: 20220304
  Serious: No
  Sender: FDA-Public Use
  Company Number: NVSC2021US125355

PATIENT
  Sex: Female

DRUGS (1)
  1. MAYZENT [Suspect]
     Active Substance: SIPONIMOD
     Indication: Multiple sclerosis
     Dosage: 2 MG, QD
     Route: 048

REACTIONS (5)
  - Withdrawal syndrome [Unknown]
  - Product dose omission issue [Unknown]
  - Obsessive-compulsive disorder [Unknown]
  - Stress [Unknown]
  - Attention deficit hyperactivity disorder [Unknown]
